FAERS Safety Report 9183730 (Version 1)
Quarter: 2013Q1

REPORT INFORMATION
  Report Type: Spontaneous
  Country: US (occurrence: US)
  Receive Date: 20130322
  Receipt Date: 20130322
  Transmission Date: 20140127
  Serious: No
  Sender: FDA-Public Use
  Company Number: US-BRISTOL-MYERS SQUIBB COMPANY-16594590

PATIENT
  Age: 68 Year
  Sex: Male
  Weight: 83.44 kg

DRUGS (1)
  1. ERBITUX SOLN FOR INF [Suspect]
     Indication: HEPATIC CANCER
     Dosage: STARTED 2 WEEKS AGO; RECEIVED 2 INFUSIONS; 3RD INF ON 16-MAY-2012.

REACTIONS (6)
  - Rash macular [Recovered/Resolved]
  - Pruritus [Recovered/Resolved]
  - Dysgeusia [Not Recovered/Not Resolved]
  - Paraesthesia oral [Not Recovered/Not Resolved]
  - Lip swelling [Not Recovered/Not Resolved]
  - Weight decreased [Unknown]
